FAERS Safety Report 11744978 (Version 42)
Quarter: 2018Q4

REPORT INFORMATION
  Report Type: Spontaneous
  Country: US (occurrence: US)
  Receive Date: 20151117
  Receipt Date: 20181026
  Transmission Date: 20190204
  Serious: Yes (Hospitalization, Other)
  Sender: FDA-Public Use
  Company Number: US-009507513-1511USA005619

PATIENT
  Age: 68 Year
  Sex: Male
  Weight: 100 kg

DRUGS (23)
  1. ZOMETA [Suspect]
     Active Substance: ZOLEDRONIC ACID
     Indication: BONE DENSITY DECREASED
  2. LEVOXYL [Concomitant]
     Active Substance: LEVOTHYROXINE SODIUM
     Dosage: UNK, 100
  3. LISINOPRIL. [Concomitant]
     Active Substance: LISINOPRIL
     Dosage: UNK
     Route: 048
  4. PREVNAR [Suspect]
     Active Substance: PNEUMOCOCCAL 7-VALENT CONJUGATE VACCINE (DIPHTHERIA CRM197 PROTEIN)
  5. CARAC [Suspect]
     Active Substance: FLUOROURACIL
     Indication: CHEMOTHERAPY
     Dosage: UNK
     Route: 061
     Dates: start: 2016
  6. ASPIRIN. [Concomitant]
     Active Substance: ASPIRIN
     Dosage: UNK
     Route: 048
  7. EVOXAC [Concomitant]
     Active Substance: CEVIMELINE HYDROCHLORIDE
     Dosage: UNK
  8. KEYTRUDA [Suspect]
     Active Substance: PEMBROLIZUMAB
     Dosage: 2 MG/KG, Q3W
     Route: 042
     Dates: start: 20151013
  9. AVASTOR [Concomitant]
     Dosage: UNK
  10. LEVOXYL [Concomitant]
     Active Substance: LEVOTHYROXINE SODIUM
     Dosage: UNK, 50
     Dates: start: 20150721
  11. MAGNESIUM (UNSPECIFIED) [Concomitant]
     Active Substance: MAGNESIUM
     Indication: OSTEOPOROSIS
     Dosage: UNK
  12. CEVIMELINE HYDROCHLORIDE. [Concomitant]
     Active Substance: CEVIMELINE HYDROCHLORIDE
     Indication: SALIVARY GLAND ATROPHY
  13. PYRIDOXINE [Concomitant]
     Active Substance: PYRIDOXINE
     Dosage: UNK
  14. CYANOCOBALAMIN. [Concomitant]
     Active Substance: CYANOCOBALAMIN
     Dosage: UNK
  15. VITAMIN D [Concomitant]
     Active Substance: CHOLECALCIFEROL
     Indication: OSTEOPOROSIS
     Dosage: 5000 UNITS DAILY
     Dates: start: 2006
  16. VITAMIN D [Concomitant]
     Active Substance: CHOLECALCIFEROL
     Dosage: 5000 UNITS DAILY
     Dates: start: 2016
  17. DOXYCYCLINE HYCLATE. [Concomitant]
     Active Substance: DOXYCYCLINE HYCLATE
     Dosage: 100 MG, BID
  18. CALCIUM CITRATE [Concomitant]
     Active Substance: CALCIUM CITRATE
     Indication: OSTEOPOROSIS
     Dosage: UNK
  19. FLOMAX [Concomitant]
     Active Substance: TAMSULOSIN HYDROCHLORIDE
     Dosage: UNK
  20. VITAMIN D [Concomitant]
     Active Substance: CHOLECALCIFEROL
     Dosage: 2000 UNITS DAILY
     Dates: start: 201606
  21. AMBIEN CR [Concomitant]
     Active Substance: ZOLPIDEM TARTRATE
     Dosage: UNK
  22. PREVACID [Concomitant]
     Active Substance: LANSOPRAZOLE
     Dosage: UNK
  23. LASTACAFT [Concomitant]
     Active Substance: ALCAFTADINE
     Dosage: UNK

REACTIONS (72)
  - Basal cell carcinoma [Unknown]
  - Urinary retention [Unknown]
  - Musculoskeletal discomfort [Unknown]
  - Gingival disorder [Unknown]
  - Balance disorder [Unknown]
  - Infusion site haemorrhage [Unknown]
  - Poor dental condition [Unknown]
  - Limb injury [Unknown]
  - Eczema [Unknown]
  - Squamous cell carcinoma of skin [Recovered/Resolved]
  - Squamous cell carcinoma of skin [Unknown]
  - Mood altered [Unknown]
  - Blister [Unknown]
  - Chills [Unknown]
  - Psoriasis [Unknown]
  - Back pain [Unknown]
  - Poor peripheral circulation [Unknown]
  - Emphysema [Unknown]
  - Pain in extremity [Unknown]
  - Seborrhoeic keratosis [Not Recovered/Not Resolved]
  - Malignant neoplasm progression [Recovered/Resolved]
  - Orthostatic hypotension [Recovered/Resolved]
  - Drug interaction [Unknown]
  - Weight decreased [Unknown]
  - Infusion site bruising [Unknown]
  - Skin injury [Recovering/Resolving]
  - Aortic arteriosclerosis [Unknown]
  - Productive cough [Recovered/Resolved]
  - Myalgia [Unknown]
  - Infusion site joint discomfort [Unknown]
  - Mass [Unknown]
  - Tendonitis [Unknown]
  - Positron emission tomogram abnormal [Unknown]
  - Therapeutic response unexpected [Unknown]
  - Skin ulcer [Unknown]
  - Anxiety [Unknown]
  - Inflammation [Unknown]
  - Diverticulum intestinal [Unknown]
  - Infusion site haemorrhage [Unknown]
  - Sinusitis [Unknown]
  - Aortic aneurysm [Unknown]
  - Drug eruption [Unknown]
  - Bowen^s disease [Unknown]
  - Fatigue [Recovered/Resolved]
  - Bone pain [Not Recovered/Not Resolved]
  - Ear pain [Unknown]
  - Peripheral swelling [Unknown]
  - Vascular access site complication [Unknown]
  - Constipation [Unknown]
  - Rash [Unknown]
  - Infusion site reaction [Unknown]
  - Pain in extremity [Unknown]
  - Drug-device interaction [Unknown]
  - Squamous cell carcinoma of skin [Unknown]
  - Peripheral coldness [Not Recovered/Not Resolved]
  - Weight increased [Not Recovered/Not Resolved]
  - Rash pruritic [Unknown]
  - Osteoarthritis [Not Recovered/Not Resolved]
  - Actinic keratosis [Unknown]
  - Hypotension [Unknown]
  - Blood glucose increased [Unknown]
  - Injection site pain [Unknown]
  - Precancerous skin lesion [Unknown]
  - Fatigue [Not Recovered/Not Resolved]
  - Rotator cuff syndrome [Unknown]
  - Skin exfoliation [Unknown]
  - Positron emission tomogram abnormal [Unknown]
  - Sputum discoloured [Unknown]
  - Dry skin [Unknown]
  - Diarrhoea [Unknown]
  - Eye swelling [Unknown]
  - Inappropriate schedule of product administration [Unknown]

NARRATIVE: CASE EVENT DATE: 201510
